FAERS Safety Report 9175610 (Version 2)
Quarter: 2013Q2

REPORT INFORMATION
  Report Type: Report from Study
  Country: DE (occurrence: DE)
  Receive Date: 20120912
  Receipt Date: 20130430
  Transmission Date: 20140414
  Serious: Yes (Hospitalization)
  Sender: FDA-Public Use
  Company Number: DE-ROCHE-1102012

PATIENT
  Age: 52 Year
  Sex: Female
  Weight: 78 kg

DRUGS (6)
  1. MYOCET [Suspect]
     Indication: BREAST CANCER
     Dosage: DATE OF LAST DOSE PRIOR TO SAE: 08/AUG/2012
     Route: 042
     Dates: start: 20120606
  2. PACLITAXEL [Suspect]
     Indication: BREAST CANCER
     Dosage: DATE OF LAST DOSE PRIOR TO SAE: 08/AUG/2012
     Route: 042
     Dates: start: 20120606, end: 20120808
  3. LAPATINIB [Suspect]
     Indication: BREAST CANCER
     Dosage: DATE OF LAST DOSE PRIOR TO SAE: 10/AUG/2012
     Route: 048
     Dates: start: 20120607
  4. TRASTUZUMAB [Suspect]
     Indication: BREAST CANCER
     Dosage: DATE OF LAST DOSE PRIOR TO SAE: 25/JUL/2012
     Route: 042
     Dates: start: 20120608
  5. DEXAMETHASONE [Concomitant]
     Route: 065
     Dates: start: 20120809, end: 20120810
  6. GRANOZYTE [Concomitant]
     Dosage: DOSE: 34U,O,F
     Route: 065
     Dates: start: 20120809, end: 20120813

REACTIONS (2)
  - Alveolitis [Recovered/Resolved]
  - Organising pneumonia [Recovered/Resolved]
